FAERS Safety Report 13699864 (Version 4)
Quarter: 2019Q3

REPORT INFORMATION
  Report Type: Spontaneous
  Country: CA (occurrence: CA)
  Receive Date: 20170629
  Receipt Date: 20190912
  Transmission Date: 20191004
  Serious: Yes (Other)
  Sender: FDA-Public Use
  Company Number: CA-ROCHE-1684427

PATIENT
  Age: 65 Year
  Sex: Female
  Weight: 88 kg

DRUGS (17)
  1. VALSARTAN. [Suspect]
     Active Substance: VALSARTAN
     Indication: PRODUCT USED FOR UNKNOWN INDICATION
     Dosage: DISPERSIBLE
     Route: 048
  2. CLARITIN [Concomitant]
     Active Substance: LORATADINE
  3. AVELOX [Concomitant]
     Active Substance: MOXIFLOXACIN HYDROCHLORIDE
     Dosage: UNK
     Route: 065
     Dates: start: 201510
  4. XOLAIR [Suspect]
     Active Substance: OMALIZUMAB
     Route: 058
     Dates: start: 20170605
  5. SEEBRI [Suspect]
     Active Substance: GLYCOPYRROLATE
     Indication: ASTHMA
     Dosage: INHALATION
     Route: 055
     Dates: start: 201410
  6. ESOMEPRAZOLE. [Concomitant]
     Active Substance: ESOMEPRAZOLE MAGNESIUM
     Indication: PRODUCT USED FOR UNKNOWN INDICATION
     Dosage: 40 MG, QD
     Route: 065
  7. VENTOLIN [Concomitant]
     Active Substance: ALBUTEROL SULFATE
     Indication: PRODUCT USED FOR UNKNOWN INDICATION
     Dosage: PRN
     Route: 065
  8. MEDROXYPROGESTERONE ACETATE. [Concomitant]
     Active Substance: MEDROXYPROGESTERONE ACETATE
     Indication: PRODUCT USED FOR UNKNOWN INDICATION
     Route: 065
  9. REACTINE [CETIRIZINE HYDROCHLORIDE] [Concomitant]
     Active Substance: CETIRIZINE HYDROCHLORIDE
     Indication: PRODUCT USED FOR UNKNOWN INDICATION
     Route: 065
  10. METFORMIN [Concomitant]
     Active Substance: METFORMIN HYDROCHLORIDE
     Indication: PRODUCT USED FOR UNKNOWN INDICATION
     Route: 065
     Dates: end: 201412
  11. LEVOFLOXACIN. [Concomitant]
     Active Substance: LEVOFLOXACIN
     Indication: RESPIRATORY DISORDER
     Route: 065
     Dates: start: 201508
  12. XOLAIR [Suspect]
     Active Substance: OMALIZUMAB
     Indication: ASTHMA
     Route: 058
     Dates: start: 20150611
  13. ALVESCO [Concomitant]
     Active Substance: CICLESONIDE
     Indication: PRODUCT USED FOR UNKNOWN INDICATION
     Dosage: 2 DF (SPRAYS), TID
     Route: 055
     Dates: start: 20150205
  14. ONBREZ BREEZHALER [Suspect]
     Active Substance: INDACATEROL
     Indication: ASTHMA
     Dosage: INHALATION
     Route: 055
     Dates: start: 20150205
  15. PREMARIN [Concomitant]
     Active Substance: ESTROGENS, CONJUGATED
     Indication: PRODUCT USED FOR UNKNOWN INDICATION
     Route: 065
  16. SINGULAIR [Concomitant]
     Active Substance: MONTELUKAST SODIUM
     Indication: PRODUCT USED FOR UNKNOWN INDICATION
     Route: 065
  17. AVELOX [Concomitant]
     Active Substance: MOXIFLOXACIN HYDROCHLORIDE
     Indication: RESPIRATORY DISORDER
     Route: 065
     Dates: start: 201507

REACTIONS (29)
  - Obstructive airways disorder [Unknown]
  - Viral infection [Unknown]
  - Cough [Unknown]
  - White blood cell count increased [Unknown]
  - Wheezing [Recovering/Resolving]
  - Red blood cell count increased [Unknown]
  - Influenza [Unknown]
  - Sinus congestion [Unknown]
  - Asthma [Recovering/Resolving]
  - Neutrophil count increased [Unknown]
  - Heart rate increased [Unknown]
  - Sinus disorder [Unknown]
  - Pneumonia [Not Recovered/Not Resolved]
  - Haematocrit increased [Unknown]
  - Face injury [Unknown]
  - Infection [Unknown]
  - Lower respiratory tract infection [Unknown]
  - Glycosylated haemoglobin increased [Unknown]
  - Hyperhidrosis [Unknown]
  - Meniscus injury [Unknown]
  - Eye pruritus [Unknown]
  - Weight increased [Unknown]
  - Blood immunoglobulin E increased [Unknown]
  - Sinusitis [Unknown]
  - General physical condition abnormal [Unknown]
  - Jaw fracture [Unknown]
  - Forced expiratory volume decreased [Not Recovered/Not Resolved]
  - Dyspnoea [Not Recovered/Not Resolved]
  - Stress [Unknown]

NARRATIVE: CASE EVENT DATE: 201410
